FAERS Safety Report 21260221 (Version 2)
Quarter: 2022Q3

REPORT INFORMATION
  Report Type: Spontaneous
  Country: US (occurrence: US)
  Receive Date: 20220826
  Receipt Date: 20220916
  Transmission Date: 20221026
  Serious: Yes (Hospitalization, Other)
  Sender: FDA-Public Use
  Company Number: US-TEVA-2022-US-2068643

PATIENT
  Age: 66 Year
  Sex: Female

DRUGS (3)
  1. ZINC [Suspect]
     Active Substance: ZINC
     Indication: Mineral supplementation
     Dosage: 65 MILLIGRAM DAILY;
     Route: 065
  2. ZINC GLUCONATE [Suspect]
     Active Substance: ZINC GLUCONATE
     Indication: Mineral supplementation
     Route: 065
  3. VITAMIN B12 [Concomitant]
     Active Substance: CYANOCOBALAMIN
     Indication: Anaemia macrocytic
     Route: 065

REACTIONS (6)
  - Copper deficiency [Recovered/Resolved]
  - Neutropenia [Recovered/Resolved]
  - Anaemia macrocytic [Unknown]
  - Anaemia [Unknown]
  - Intentional product misuse [Unknown]
  - Intentional overdose [Unknown]
